FAERS Safety Report 5509814-8 (Version None)
Quarter: 2007Q4

REPORT INFORMATION
  Report Type: 
  Country: None (occurrence: None)
  Receive Date: 20071026
  Receipt Date: 20070928
  Transmission Date: 20080405
  Serious: Yes (Death, Hospitalization)
  Sender: FDA-Public Use
  Company Number: CLOF-10689

PATIENT
  Age: 22 Year
  Sex: Female
  Weight: 104 kg

DRUGS (3)
  1. CLOFARABINE. MFR: GENZYME [Suspect]
     Indication: ACUTE LYMPHOCYTIC LEUKAEMIA
     Dosage: 40 MG/M2 QD IV
     Route: 042
     Dates: start: 20070911, end: 20070913
  2. CYTARABINE [Suspect]
     Indication: ACUTE LYMPHOCYTIC LEUKAEMIA
     Dosage: 1000 MG/M2 QD IV
     Route: 042
     Dates: start: 20070911, end: 20070914
  3. RED BLOOD CELLS [Concomitant]

REACTIONS (1)
  - NEUTROPENIC INFECTION [None]
